FAERS Safety Report 24223744 (Version 1)
Quarter: 2024Q3

REPORT INFORMATION
  Report Type: Spontaneous
  Country: US (occurrence: None)
  Receive Date: 20240816
  Receipt Date: 20240816
  Transmission Date: 20241016
  Serious: Yes (Disabling)
  Sender: Public
  Company Number: None

PATIENT
  Age: 42 Year
  Sex: Female
  Weight: 122.4 kg

DRUGS (17)
  1. SPRYCEL [Suspect]
     Active Substance: DASATINIB
     Indication: Chronic myeloid leukaemia
     Dosage: 1 TABLET DAILY ORAL
     Route: 048
     Dates: start: 20210721, end: 20240815
  2. CYMBALTA [Concomitant]
  3. AMBIEN [Concomitant]
  4. XANAX [Concomitant]
     Active Substance: ALPRAZOLAM
  5. OXCARBAZEPINE [Concomitant]
  6. dastantanib [Concomitant]
  7. ALBUTEROL SULFATE [Concomitant]
     Active Substance: ALBUTEROL SULFATE
  8. ADVAIR HFA [Concomitant]
     Active Substance: FLUTICASONE PROPIONATE\SALMETEROL XINAFOATE
  9. azelastine nasal spray [Concomitant]
  10. MELOXICAM [Concomitant]
  11. IRON [Concomitant]
  12. VITAMIN D3 [Concomitant]
     Active Substance: CHOLECALCIFEROL
  13. COFFEE [Concomitant]
     Active Substance: ARABICA COFFEE BEAN\COFFEE BEAN
  14. TEA [Concomitant]
     Active Substance: TEA LEAF
  15. NEEM [Concomitant]
  16. ZYRTEC [Concomitant]
     Active Substance: CETIRIZINE HYDROCHLORIDE
  17. TYLENOL [Concomitant]

REACTIONS (25)
  - Bundle branch block right [None]
  - Cardiac disorder [None]
  - Weight increased [None]
  - Fatigue [None]
  - Asthenia [None]
  - Sinus pain [None]
  - Dysphagia [None]
  - Migraine [None]
  - Arthralgia [None]
  - Pyrexia [None]
  - Chills [None]
  - Breast cyst [None]
  - Hypotension [None]
  - Nausea [None]
  - Vomiting [None]
  - Constipation [None]
  - Muscle spasms [None]
  - Electrolyte imbalance [None]
  - Mood altered [None]
  - Dyspnoea [None]
  - Confusional state [None]
  - Vision blurred [None]
  - Alopecia [None]
  - Hyperhidrosis [None]
  - Nasal polyps [None]

NARRATIVE: CASE EVENT DATE: 20210801
